FAERS Safety Report 8057526-1 (Version None)
Quarter: 2012Q1

REPORT INFORMATION
  Report Type: 
  Country: None (occurrence: None)
  Receive Date: 20120119
  Receipt Date: 20120113
  Transmission Date: 20120608
  Serious: Yes (Hospitalization, Other)
  Sender: FDA-Public Use
  Company Number: US-ASTRAZENECA-2011SE69705

PATIENT
  Age: 80 Year
  Sex: Female
  Weight: 78.9 kg

DRUGS (4)
  1. SYMBICORT [Suspect]
     Route: 055
  2. NASONXY [Concomitant]
  3. ZOLOFT [Concomitant]
  4. LIPITOR [Concomitant]

REACTIONS (2)
  - MALIGNANT MELANOMA [None]
  - DRUG DOSE OMISSION [None]
